FAERS Safety Report 20299490 (Version 3)
Quarter: 2022Q3

REPORT INFORMATION
  Report Type: Spontaneous
  Country: PL (occurrence: PL)
  Receive Date: 20220105
  Receipt Date: 20220913
  Transmission Date: 20221027
  Serious: Yes (Hospitalization, Other)
  Sender: FDA-Public Use
  Company Number: PL-Orion Corporation ORION PHARMA-SERT2021-0013

PATIENT
  Age: 17 Year
  Sex: Female

DRUGS (17)
  1. RISPERIDONE [Suspect]
     Active Substance: RISPERIDONE
     Indication: Schizophrenia
     Route: 065
  2. LORAZEPAM [Suspect]
     Active Substance: LORAZEPAM
     Indication: Schizophrenia
     Dosage: UPTO 3 MG/D
     Route: 065
  3. ZUCLOPENTHIXOL [Suspect]
     Active Substance: ZUCLOPENTHIXOL
     Indication: Schizophrenia
     Route: 065
  4. OLANZAPINE [Suspect]
     Active Substance: OLANZAPINE
     Indication: Schizophrenia
     Dosage: UPTO 15MG/D
     Route: 065
  5. OPIPRAMOL [Suspect]
     Active Substance: OPIPRAMOL
     Indication: Schizophrenia
     Route: 065
  6. SERTRALINE [Suspect]
     Active Substance: SERTRALINE HYDROCHLORIDE
     Indication: Schizophrenia
     Route: 065
  7. CLOZAPINE [Suspect]
     Active Substance: CLOZAPINE
     Indication: Schizophrenia
     Route: 065
  8. CLOZAPINE [Suspect]
     Active Substance: CLOZAPINE
     Dosage: WHENEVER NEEDED
     Route: 065
  9. CLOZAPINE [Suspect]
     Active Substance: CLOZAPINE
     Route: 065
  10. CLOZAPINE [Suspect]
     Active Substance: CLOZAPINE
     Route: 065
  11. ARIPIPRAZOLE [Suspect]
     Active Substance: ARIPIPRAZOLE
     Indication: Schizophrenia
     Dosage: UPTO 15 MG
     Route: 065
  12. VALPROIC ACID [Suspect]
     Active Substance: VALPROIC ACID
     Indication: Seizure
     Route: 048
  13. VALPROIC ACID [Suspect]
     Active Substance: VALPROIC ACID
     Route: 042
  14. DIAZEPAM [Suspect]
     Active Substance: DIAZEPAM
     Indication: Seizure
     Route: 042
  15. DIAZEPAM [Suspect]
     Active Substance: DIAZEPAM
     Route: 042
  16. PERAZINE [Suspect]
     Active Substance: PERAZINE
     Indication: Schizophrenia
     Dosage: UPTO 500 MG/D
     Route: 065
  17. PERAZINE [Suspect]
     Active Substance: PERAZINE
     Dosage: UPTO 100 MG/D
     Route: 065

REACTIONS (4)
  - Encephalitis autoimmune [Recovered/Resolved]
  - Drug withdrawal syndrome [Recovered/Resolved]
  - Pneumonia aspiration [Recovered/Resolved]
  - Drug ineffective [Unknown]
